FAERS Safety Report 9290299 (Version 2)
Quarter: 2013Q3

REPORT INFORMATION
  Report Type: Spontaneous
  Country: IT (occurrence: IT)
  Receive Date: 20130515
  Receipt Date: 20130703
  Transmission Date: 20140515
  Serious: Yes (Death, Hospitalization)
  Sender: FDA-Public Use
  Company Number: IT-BRISTOL-MYERS SQUIBB COMPANY-18883603

PATIENT
  Age: 79 Year
  Sex: Female

DRUGS (8)
  1. COUMADIN TABS 5 MG [Suspect]
     Indication: ATRIAL FIBRILLATION
     Dosage: 1DF:1 TABS
     Route: 048
     Dates: start: 20090101, end: 20130505
  2. OMEPRAZOLE [Concomitant]
     Route: 048
  3. ATENOLOL [Concomitant]
     Route: 048
  4. ALDACTONE [Concomitant]
     Dosage: CAPS
     Route: 048
  5. NORVASC [Concomitant]
     Dosage: 1DF:1 UNIT
     Route: 048
  6. FOLINA [Concomitant]
  7. TRIATEC [Concomitant]
     Dosage: TABS
     Route: 048
  8. LASIX [Concomitant]
     Dosage: 1DF: 2 UNITS OF 25MG TABS
     Route: 048

REACTIONS (3)
  - Septic shock [Fatal]
  - Multi-organ failure [Fatal]
  - Hypocoagulable state [Recovering/Resolving]
